FAERS Safety Report 24281234 (Version 1)
Quarter: 2024Q3

REPORT INFORMATION
  Report Type: Spontaneous
  Country: US (occurrence: None)
  Receive Date: 20240830
  Receipt Date: 20240830
  Transmission Date: 20241017
  Serious: Yes (Disabling)
  Sender: Public
  Company Number: None

PATIENT
  Age: 68 Year
  Sex: Female
  Weight: 54 kg

DRUGS (3)
  1. TYLENOL PM EXTRA STRENGTH [Suspect]
     Active Substance: ACETAMINOPHEN\DIPHENHYDRAMINE HYDROCHLORIDE
     Indication: Sleep disorder
     Dosage: 1 TABLET ORAL
     Route: 048
     Dates: start: 20240823, end: 20240823
  2. COSMETICS [Suspect]
     Active Substance: COSMETICS
     Indication: Hair colour changes
     Dosage: TOPICAL
     Route: 061
  3. VITAMINS [Concomitant]
     Active Substance: VITAMINS

REACTIONS (5)
  - Eye injury [None]
  - Visual impairment [None]
  - Chemical burns of eye [None]
  - Glaucoma [None]
  - Impaired driving ability [None]

NARRATIVE: CASE EVENT DATE: 20240823
